FAERS Safety Report 13364683 (Version 1)
Quarter: 2017Q1

REPORT INFORMATION
  Report Type: Spontaneous
  Country: JP (occurrence: JP)
  Receive Date: 20170323
  Receipt Date: 20170323
  Transmission Date: 20170429
  Serious: Yes (Hospitalization)
  Sender: FDA-Public Use
  Company Number: JP-ELI_LILLY_AND_COMPANY-JP201703007045

PATIENT
  Sex: Female

DRUGS (2)
  1. CYMBALTA [Suspect]
     Active Substance: DULOXETINE HYDROCHLORIDE
     Indication: PRODUCT USED FOR UNKNOWN INDICATION
     Route: 048
  2. REFLEX                             /01293201/ [Concomitant]
     Active Substance: MIRTAZAPINE

REACTIONS (3)
  - Disseminated intravascular coagulation [Unknown]
  - Renal disorder [Not Recovered/Not Resolved]
  - Hypernatraemia [Not Recovered/Not Resolved]
